FAERS Safety Report 25194766 (Version 1)
Quarter: 2025Q2

REPORT INFORMATION
  Report Type: Report from Study
  Country: US (occurrence: US)
  Receive Date: 20250414
  Receipt Date: 20250414
  Transmission Date: 20250716
  Serious: Yes (Other)
  Sender: ABBVIE
  Company Number: US-ABBVIE-6225761

PATIENT
  Age: 66 Year
  Sex: Male

DRUGS (1)
  1. SKYRIZI [Suspect]
     Active Substance: RISANKIZUMAB-RZAA
     Indication: Product used for unknown indication
     Route: 058

REACTIONS (6)
  - Neoplasm [Unknown]
  - Swelling [Not Recovered/Not Resolved]
  - Throat irritation [Unknown]
  - Gingival pain [Unknown]
  - Peripheral swelling [Not Recovered/Not Resolved]
  - Pharyngeal swelling [Not Recovered/Not Resolved]

NARRATIVE: CASE EVENT DATE: 20241201
